FAERS Safety Report 4915729-6 (Version None)
Quarter: 2006Q1

REPORT INFORMATION
  Report Type: 
  Country: None (occurrence: None)
  Receive Date: 20060217
  Receipt Date: 20060206
  Transmission Date: 20060701
  Serious: Yes (Hospitalization, Other)
  Sender: FDA-Public Use
  Company Number: US-JNJFOC-20060200568

PATIENT
  Sex: Male
  Weight: 106.6 kg

DRUGS (9)
  1. DURAGESIC-100 [Suspect]
     Route: 062
  2. PREVACID [Concomitant]
     Indication: GASTRIC DISORDER
     Route: 048
  3. PLAVIX [Concomitant]
     Route: 048
  4. DIOVAN [Concomitant]
     Route: 048
  5. MS CONTIN [Concomitant]
     Indication: PAIN
     Route: 048
  6. PAXIL [Concomitant]
     Indication: DEPRESSION
     Route: 048
  7. ZOCOR [Concomitant]
     Route: 048
  8. LORTAB [Concomitant]
     Route: 048
  9. LORTAB [Concomitant]
     Indication: PAIN
     Route: 048

REACTIONS (2)
  - CHEST PAIN [None]
  - CORONARY ARTERY OCCLUSION [None]
